FAERS Safety Report 9522271 (Version 1)
Quarter: 2013Q3

REPORT INFORMATION
  Report Type: Spontaneous
  Country: FR (occurrence: FR)
  Receive Date: 20130913
  Receipt Date: 20130913
  Transmission Date: 20140515
  Serious: Yes (Other)
  Sender: FDA-Public Use
  Company Number: PHHY2013FR101028

PATIENT
  Age: 61 Year
  Sex: Male

DRUGS (3)
  1. ACLASTA [Suspect]
     Indication: OSTEITIS DEFORMANS
     Dosage: 5 MG, UNK
     Route: 042
     Dates: start: 20090518
  2. UVEDOSE [Concomitant]
     Dosage: UNK UKN, UNK
  3. FIXICAL VITAMINE D3 [Concomitant]
     Dosage: UNK UKN, UNK

REACTIONS (1)
  - Conjunctival oedema [Recovered/Resolved]
